FAERS Safety Report 13947672 (Version 3)
Quarter: 2018Q1

REPORT INFORMATION
  Report Type: Report from Study
  Country: US (occurrence: US)
  Receive Date: 20170908
  Receipt Date: 20180327
  Transmission Date: 20180508
  Serious: Yes (Hospitalization)
  Sender: FDA-Public Use
  Company Number: US-BIOGEN-2017BI00455072

PATIENT
  Age: 59 Year
  Sex: Female

DRUGS (11)
  1. BABY ASPIRIN [Concomitant]
     Active Substance: ASPIRIN
     Indication: PRODUCT USED FOR UNKNOWN INDICATION
     Route: 048
  2. NEXIUM [Concomitant]
     Active Substance: ESOMEPRAZOLE MAGNESIUM
     Indication: PRODUCT USED FOR UNKNOWN INDICATION
     Route: 048
  3. FISH OIL [Concomitant]
     Active Substance: FISH OIL
     Indication: PRODUCT USED FOR UNKNOWN INDICATION
     Route: 065
  4. IRON TABLET [Concomitant]
     Active Substance: IRON
     Indication: PRODUCT USED FOR UNKNOWN INDICATION
     Route: 065
  5. THERAGRAN [Concomitant]
     Active Substance: VITAMINS
     Indication: PRODUCT USED FOR UNKNOWN INDICATION
     Route: 065
  6. MELATONIN [Concomitant]
     Active Substance: MELATONIN
     Indication: PRODUCT USED FOR UNKNOWN INDICATION
     Route: 065
  7. TECFIDERA [Suspect]
     Active Substance: DIMETHYL FUMARATE
     Indication: MULTIPLE SCLEROSIS
     Route: 048
     Dates: start: 20170801
  8. BACLOFEN. [Concomitant]
     Active Substance: BACLOFEN
     Indication: PRODUCT USED FOR UNKNOWN INDICATION
     Route: 048
  9. NITROFURANTOIN MACROCRYST [Concomitant]
     Indication: PRODUCT USED FOR UNKNOWN INDICATION
     Route: 065
  10. VITAMIN D3 [Concomitant]
     Active Substance: CHOLECALCIFEROL
     Indication: PRODUCT USED FOR UNKNOWN INDICATION
     Route: 065
  11. LEVOTHYROXINE SODIUM. [Concomitant]
     Active Substance: LEVOTHYROXINE SODIUM
     Indication: PRODUCT USED FOR UNKNOWN INDICATION
     Route: 048

REACTIONS (1)
  - Atrial fibrillation [Recovered/Resolved]

NARRATIVE: CASE EVENT DATE: 20170904
